FAERS Safety Report 23678867 (Version 2)
Quarter: 2024Q2

REPORT INFORMATION
  Report Type: Spontaneous
  Country: US (occurrence: US)
  Receive Date: 20240327
  Receipt Date: 20240424
  Transmission Date: 20240716
  Serious: No
  Sender: FDA-Public Use
  Company Number: US-BRISTOL-MYERS SQUIBB COMPANY-2024-048680

PATIENT
  Age: 65 Year
  Sex: Male

DRUGS (3)
  1. SPRYCEL [Suspect]
     Active Substance: DASATINIB
     Indication: Chronic lymphocytic leukaemia
     Route: 048
     Dates: start: 202403
  2. SPRYCEL [Suspect]
     Active Substance: DASATINIB
     Indication: Chronic myelomonocytic leukaemia
  3. IMATINIB MESYLATE [Concomitant]
     Active Substance: IMATINIB MESYLATE
     Indication: Product used for unknown indication

REACTIONS (2)
  - Pain [Unknown]
  - Fatigue [Not Recovered/Not Resolved]
